FAERS Safety Report 8830965 (Version 2)
Quarter: 2012Q4

REPORT INFORMATION
  Report Type: 
  Country: JP (occurrence: JP)
  Receive Date: 20121008
  Receipt Date: 20121025
  Transmission Date: 20130627
  Serious: Yes (Hospitalization)
  Sender: FDA-Public Use
  Company Number: JP-PFIZER INC-2012246669

PATIENT
  Age: 89 Year
  Sex: Male

DRUGS (3)
  1. ATARAX-P [Suspect]
     Indication: DEPRESSION
     Dosage: 1 g, 1x/day
     Route: 048
  2. ZYPREXA [Concomitant]
     Indication: DEPRESSION
     Dosage: UNK
     Route: 048
  3. MEMARY [Concomitant]
     Indication: DEMENTIA ALZHEIMER^S TYPE
     Dosage: UNK
     Route: 048

REACTIONS (1)
  - Pneumonia [Recovered/Resolved]
